FAERS Safety Report 7132567-7 (Version None)
Quarter: 2010Q4

REPORT INFORMATION
  Report Type: 
  Country: None (occurrence: None)
  Receive Date: 20101202
  Receipt Date: 20101129
  Transmission Date: 20110411
  Serious: Yes (Death, Hospitalization)
  Sender: FDA-Public Use
  Company Number: PHHY2010JP47991

PATIENT
  Sex: Male
  Weight: 45 kg

DRUGS (15)
  1. AFINITOR [Suspect]
     Indication: METASTATIC RENAL CELL CARCINOMA
     Dosage: 10 MG DAILY
     Route: 048
     Dates: start: 20100607, end: 20100611
  2. AFINITOR [Suspect]
     Dosage: 5 MG DAILY
     Route: 048
     Dates: start: 20100623, end: 20100711
  3. BLOPRESS [Concomitant]
     Indication: HYPERTENSION
     Dosage: 4 MG, UNK
     Route: 048
  4. CALCIUM POLYSTYRENE SULFONATE [Concomitant]
     Dosage: 50 MG, UNK
     Route: 048
  5. PURSENNID [Concomitant]
     Indication: CONSTIPATION
     Dosage: 2 DF, UNK
     Route: 048
  6. GLIMICRON [Concomitant]
     Indication: DIABETES MELLITUS
     Dosage: 40 MG, UNK
     Route: 048
  7. SELOKEN [Concomitant]
     Indication: HYPERTENSION
     Dosage: 40 MG, UNK
     Route: 048
  8. SORAFENIB TOSILATE [Concomitant]
     Indication: METASTATIC RENAL CELL CARCINOMA
     Dosage: 800 MG
     Route: 048
     Dates: start: 20100304
  9. SORAFENIB TOSILATE [Concomitant]
     Dosage: 400 MG
     Route: 048
     Dates: end: 20100531
  10. PENTCILLIN [Concomitant]
     Dosage: 4.0 G
     Route: 042
     Dates: start: 20100612, end: 20100614
  11. MEROPENEM [Concomitant]
     Dosage: 1.0 G
     Route: 042
     Dates: start: 20100614, end: 20100616
  12. CLINDAMYCIN PHOSPHATE [Concomitant]
     Dosage: 1200 MG
     Route: 042
     Dates: start: 20100617, end: 20100621
  13. FIRSTCIN [Concomitant]
     Dosage: 2.0 G
     Route: 042
     Dates: start: 20100618, end: 20100621
  14. CLARITHROMYCIN [Concomitant]
     Dosage: 400 MG
     Route: 048
     Dates: start: 20100622, end: 20100628
  15. LENDORMIN [Concomitant]
     Dosage: 0.25 MG
     Route: 048
     Dates: start: 20100705, end: 20100706

REACTIONS (4)
  - ANAEMIA [None]
  - MALIGNANT NEOPLASM PROGRESSION [None]
  - PNEUMONIA [None]
  - PYREXIA [None]
